FAERS Safety Report 6535777-2 (Version None)
Quarter: 2010Q1

REPORT INFORMATION
  Report Type: 
  Country: None (occurrence: None)
  Receive Date: 20100113
  Receipt Date: 20100107
  Transmission Date: 20100710
  Serious: Yes (Other)
  Sender: FDA-Public Use
  Company Number: US-ROCHE-678415

PATIENT
  Sex: Female

DRUGS (4)
  1. BONIVA [Suspect]
     Indication: BONE SCAN ABNORMAL
     Route: 048
     Dates: start: 20080101, end: 20091101
  2. LOTREL [Concomitant]
  3. PAXIL [Concomitant]
  4. VITAMINE D [Concomitant]

REACTIONS (3)
  - ARTHROPATHY [None]
  - PAIN IN JAW [None]
  - TRISMUS [None]
